FAERS Safety Report 12808353 (Version 2)
Quarter: 2017Q2

REPORT INFORMATION
  Report Type: Report from Study
  Country: None (occurrence: BR)
  Receive Date: 20161004
  Receipt Date: 20170607
  Transmission Date: 20170830
  Serious: Yes (Other)
  Sender: FDA-Public Use
  Company Number: BR-ABBVIE-16P-020-1744046-00

PATIENT
  Sex: Female
  Weight: 54 kg

DRUGS (6)
  1. SYNTHROID [Suspect]
     Active Substance: LEVOTHYROXINE SODIUM
     Dosage: FREQUENCY: FASTING; MON/ WED/ FRI, DAILY 1 TABLET
     Route: 065
     Dates: start: 201704
  2. CALCIUM [Concomitant]
     Active Substance: CALCIUM
     Indication: PRODUCT USED FOR UNKNOWN INDICATION
     Dates: start: 2011
  3. SYNTHROID [Suspect]
     Active Substance: LEVOTHYROXINE SODIUM
     Indication: HYPOTHYROIDISM
     Dosage: DAILY DOSE: 50 MCG; AFTER FASTING
     Route: 048
     Dates: start: 2003, end: 201704
  4. SYNTHROID [Suspect]
     Active Substance: LEVOTHYROXINE SODIUM
     Dosage: FREQUENCY: FASTING; TUE/THU/SAT/SUN, DAILY 1 TABLET
     Route: 065
     Dates: start: 201704
  5. TREZOR [Concomitant]
     Active Substance: ROSUVASTATIN CALCIUM
     Indication: BLOOD CHOLESTEROL ABNORMAL
     Dates: start: 2014
  6. VITAMIN D [Concomitant]
     Active Substance: CHOLECALCIFEROL
     Indication: PRODUCT USED FOR UNKNOWN INDICATION
     Dates: start: 2014

REACTIONS (2)
  - Blood thyroid stimulating hormone increased [Unknown]
  - Thyroiditis [Recovered/Resolved]

NARRATIVE: CASE EVENT DATE: 2005
